FAERS Safety Report 6767544-9 (Version None)
Quarter: 2010Q2

REPORT INFORMATION
  Report Type: 
  Country: None (occurrence: None)
  Receive Date: 20100614
  Receipt Date: 20100603
  Transmission Date: 20101027
  Serious: Yes (Other)
  Sender: FDA-Public Use
  Company Number: PHHY2010NL36483

PATIENT
  Sex: Female
  Weight: 48 kg

DRUGS (8)
  1. ACLASTA [Suspect]
     Indication: OSTEOPOROSIS
     Dosage: 5 MG
     Route: 042
     Dates: start: 20090101
  2. ACLASTA [Suspect]
     Dosage: 5 MG
     Route: 042
     Dates: start: 20100101
  3. CALCICHEW D3 [Concomitant]
     Dosage: 500 MG/400IE ONE DAILY DOSE
  4. PREDNISONE [Concomitant]
     Dosage: 15 MG/DAY
  5. NEXIUM [Concomitant]
     Dosage: 40 MG/DAY
  6. FUROSEMIDE [Concomitant]
     Dosage: 40 MG, ONE DAILY DOSE
  7. AZATHIOPRINE [Concomitant]
     Dosage: 75 MG/DAY
  8. SPIRONOLACTONE [Concomitant]
     Dosage: 100 MG, ONE DAILY DOSE

REACTIONS (1)
  - OSTEONECROSIS OF JAW [None]
